FAERS Safety Report 17581660 (Version 2)
Quarter: 2020Q2

REPORT INFORMATION
  Report Type: Spontaneous
  Country: US (occurrence: US)
  Receive Date: 20200325
  Receipt Date: 20200423
  Transmission Date: 20200713
  Serious: No
  Sender: FDA-Public Use
  Company Number: US-NXDC-GLE-0019-2020

PATIENT
  Age: 44 Year
  Sex: Female
  Weight: 67.5 kg

DRUGS (5)
  1. KEPPRA [Concomitant]
     Active Substance: LEVETIRACETAM
     Dosage: KEPPRA 1000MG TWICE DAILY
  2. DAPSONE. [Concomitant]
     Active Substance: DAPSONE
     Dosage: APPLIED TO FACE 1-2 TIMES DAILY
     Route: 061
  3. SPIRONOLACTONE. [Concomitant]
     Active Substance: SPIRONOLACTONE
     Dosage: 200 MG DAILY
  4. GLEOLAN [Suspect]
     Active Substance: AMINOLEVULINIC ACID HYDROCHLORIDE
     Indication: PHOTODYNAMIC DIAGNOSTIC PROCEDURE
     Dosage: 1350MG
     Dates: start: 20200309, end: 20200309
  5. NIKKI [Concomitant]
     Active Substance: DROSPIRENONE\ETHINYL ESTRADIOL
     Dosage: 3-0.02 MG 1 TABLET DAILY

REACTIONS (1)
  - Drug ineffective [Unknown]

NARRATIVE: CASE EVENT DATE: 20200309
